FAERS Safety Report 7960585-5 (Version None)
Quarter: 2011Q4

REPORT INFORMATION
  Report Type: 
  Country: None (occurrence: None)
  Receive Date: 20111206
  Receipt Date: 20111128
  Transmission Date: 20120403
  Serious: Yes (Hospitalization)
  Sender: FDA-Public Use
  Company Number: US-ASTRAZENECA-2011SE72154

PATIENT
  Age: 84 Year
  Sex: Male
  Weight: 64.4 kg

DRUGS (9)
  1. CRESTOR [Suspect]
     Indication: BLOOD CHOLESTEROL
     Route: 048
     Dates: start: 20110701
  2. FURESOMIDE [Concomitant]
     Dosage: QD
  3. CHONDROITIN [Concomitant]
     Indication: ARTHROPATHY
     Dosage: QD
  4. GLUCOSAMINE [Concomitant]
     Indication: ARTHROPATHY
     Dosage: QD
  5. POTASSIUM CHLORIDE [Concomitant]
     Dosage: BID
  6. BENICAR [Concomitant]
     Dosage: QD
  7. CARVEDILOL [Concomitant]
     Dosage: BID
  8. ASPIRIN [Concomitant]
     Dosage: QD
     Dates: start: 20010101
  9. CALCIUM [Concomitant]
     Dosage: QD

REACTIONS (2)
  - AORTIC DILATATION [None]
  - HEARING IMPAIRED [None]
